FAERS Safety Report 5624675-4 (Version None)
Quarter: 2008Q1

REPORT INFORMATION
  Report Type: 
  Country: None (occurrence: None)
  Receive Date: 20080213
  Receipt Date: 20080206
  Transmission Date: 20080703
  Serious: Yes (Hospitalization)
  Sender: FDA-Public Use
  Company Number: A0708445A

PATIENT
  Age: 55 Year
  Sex: Female
  Weight: 108.6 kg

DRUGS (1)
  1. LAPATINIB [Suspect]
     Indication: CERVIX CARCINOMA
     Dosage: 1500MG PER DAY
     Route: 048
     Dates: start: 20071204

REACTIONS (3)
  - COUGH [None]
  - DYSPNOEA [None]
  - HYPOGLYCAEMIA [None]
